FAERS Safety Report 13847291 (Version 1)
Quarter: 2017Q3

REPORT INFORMATION
  Report Type: Spontaneous
  Country: GB (occurrence: GB)
  Receive Date: 20170808
  Receipt Date: 20170808
  Transmission Date: 20171127
  Serious: Yes (Disabling, Other)
  Sender: FDA-Public Use
  Company Number: PHFR2017GB006293

PATIENT
  Age: 36 Year
  Sex: Male
  Weight: 95.25 kg

DRUGS (2)
  1. LORATADIN [Concomitant]
     Active Substance: LORATADINE
     Indication: PRODUCT USED FOR UNKNOWN INDICATION
     Route: 065
  2. AMOXICILLIN. [Suspect]
     Active Substance: AMOXICILLIN
     Indication: PNEUMONIA BACTERIAL
     Dosage: 500
     Route: 048
     Dates: start: 20170714, end: 20170719

REACTIONS (4)
  - Lymphadenopathy [Unknown]
  - Pruritus [Unknown]
  - Erythema [Unknown]
  - Dermatitis allergic [Unknown]

NARRATIVE: CASE EVENT DATE: 20170718
